FAERS Safety Report 11883364 (Version 1)
Quarter: 2015Q4

REPORT INFORMATION
  Report Type: Spontaneous
  Country: US (occurrence: US)
  Receive Date: 20151231
  Receipt Date: 20151231
  Transmission Date: 20160305
  Serious: No
  Sender: FDA-Public Use
  Company Number: US-PFIZER INC-2015473911

PATIENT
  Age: 64 Year
  Sex: Female

DRUGS (4)
  1. CHANTIX [Suspect]
     Active Substance: VARENICLINE TARTRATE
     Indication: SMOKING CESSATION THERAPY
     Dosage: 1MG
     Route: 048
     Dates: start: 20151227
  2. LEXAPRO [Concomitant]
     Active Substance: ESCITALOPRAM OXALATE
     Indication: POST-TRAUMATIC STRESS DISORDER
     Dosage: UNKNOWN
     Dates: start: 2001
  3. LEXAPRO [Concomitant]
     Active Substance: ESCITALOPRAM OXALATE
     Indication: DEPRESSION
  4. CYPROHEPTADINE. [Concomitant]
     Active Substance: CYPROHEPTADINE
     Indication: SEDATION
     Dosage: 4 MG, UNK

REACTIONS (5)
  - Swelling [Unknown]
  - Expired product administered [Unknown]
  - Memory impairment [Unknown]
  - Weight fluctuation [Unknown]
  - Stress [Unknown]

NARRATIVE: CASE EVENT DATE: 20151227
